FAERS Safety Report 6974590-9 (Version None)
Quarter: 2010Q3

REPORT INFORMATION
  Report Type: 
  Country: None (occurrence: None)
  Receive Date: 20100909
  Receipt Date: 20100831
  Transmission Date: 20110219
  Serious: Yes (Other)
  Sender: FDA-Public Use
  Company Number: US-AMGEN-QUU424142

PATIENT
  Sex: Female
  Weight: 78.1 kg

DRUGS (6)
  1. NPLATE [Suspect]
     Indication: IDIOPATHIC THROMBOCYTOPENIC PURPURA
     Dates: start: 20080901, end: 20100818
  2. ASPIRIN [Concomitant]
  3. ASCORBIC ACID [Concomitant]
  4. CLARITIN [Concomitant]
  5. PREPARATION H [Concomitant]
  6. TOPAMAX [Concomitant]

REACTIONS (5)
  - BONE MARROW RETICULIN FIBROSIS [None]
  - HAEMOLYTIC ANAEMIA [None]
  - PRIMARY HYPERALDOSTERONISM [None]
  - RED BLOOD CELL SEDIMENTATION RATE INCREASED [None]
  - THERAPEUTIC RESPONSE DECREASED [None]
